FAERS Safety Report 8561815 (Version 2)
Quarter: 2012Q4

REPORT INFORMATION
  Report Type: 
  Country: US (occurrence: US)
  Receive Date: 20120515
  Receipt Date: 20121109
  Transmission Date: 20130627
  Serious: Yes (Hospitalization)
  Sender: FDA-Public Use
  Company Number: US-BAYER-2012-044631

PATIENT
  Age: 18 Year
  Sex: Female
  Weight: 54 kg

DRUGS (5)
  1. YAZ [Suspect]
     Indication: ACNE
     Dosage: UNK
     Dates: start: 200909, end: 201001
  2. MINOCYCLINE [Concomitant]
     Dosage: 100 mg, daily
     Route: 048
     Dates: start: 20080225
  3. CLARITHROMYCIN [Concomitant]
     Dosage: 500 mg, two tablets daily for 7 days
     Route: 048
     Dates: start: 20091012
  4. MULTIPLE VITAMINS [Concomitant]
  5. PERCOCET [Concomitant]

REACTIONS (11)
  - Cholecystectomy [None]
  - Cholecystitis chronic [None]
  - Bile duct obstruction [None]
  - Injury [None]
  - Chest pain [None]
  - Nausea [None]
  - Discomfort [None]
  - Emotional distress [None]
  - Fear of death [None]
  - Nervousness [None]
  - Depression [None]
